FAERS Safety Report 13286150 (Version 2)
Quarter: 2017Q1

REPORT INFORMATION
  Report Type: Report from Study
  Country: US (occurrence: US)
  Receive Date: 20170301
  Receipt Date: 20170322
  Transmission Date: 20170428
  Serious: Yes (Death, Hospitalization)
  Sender: FDA-Public Use
  Company Number: US-ACTELION-A-US2016-144669

PATIENT
  Age: 75 Year
  Sex: Female

DRUGS (15)
  1. COENZYME Q10 [Concomitant]
     Active Substance: UBIDECARENONE
  2. LEVOTHYROXINE. [Concomitant]
     Active Substance: LEVOTHYROXINE
     Dosage: 112 MCG, UNK
  3. MULTIVITAMIN [Concomitant]
     Active Substance: VITAMINS
  4. TRACLEER [Suspect]
     Active Substance: BOSENTAN
     Indication: PULMONARY HYPERTENSION
     Dosage: 125 MG, BID
     Route: 048
  5. SILDENAFIL. [Concomitant]
     Active Substance: SILDENAFIL
  6. AMLODIPINE [Concomitant]
     Active Substance: AMLODIPINE BESYLATE
  7. NEXIUM [Concomitant]
     Active Substance: ESOMEPRAZOLE MAGNESIUM
     Dosage: 20 MG, UNK
  8. METHOTREXATE. [Concomitant]
     Active Substance: METHOTREXATE
     Dosage: 17.5 MG, Q1WEEK
  9. UPTRAVI [Suspect]
     Active Substance: SELEXIPAG
     Dosage: 400 MCG, BID
     Route: 048
  10. DIGOXIN. [Concomitant]
     Active Substance: DIGOXIN
     Dosage: 0.125 MG, QD
     Route: 048
  11. FOLIC ACID. [Concomitant]
     Active Substance: FOLIC ACID
  12. UPTRAVI [Suspect]
     Active Substance: SELEXIPAG
     Indication: PULMONARY HYPERTENSION
     Dosage: 600 MCG, BID
     Route: 048
     Dates: start: 20160822
  13. ELIQUIS [Concomitant]
     Active Substance: APIXABAN
  14. FUROSEMIDE. [Concomitant]
     Active Substance: FUROSEMIDE
     Dosage: 60 MG, UNK
  15. SERTRALINE [Concomitant]
     Active Substance: SERTRALINE HYDROCHLORIDE
     Dosage: 50 MG, QD
     Route: 048

REACTIONS (11)
  - Asthenia [Unknown]
  - Glomerular filtration rate abnormal [Unknown]
  - Haemoglobin abnormal [Unknown]
  - Fatigue [Unknown]
  - Multiple organ dysfunction syndrome [Fatal]
  - Right ventricular failure [Fatal]
  - Red blood cell count abnormal [Unknown]
  - Failure to thrive [Fatal]
  - Blood urea abnormal [Unknown]
  - Fall [Unknown]
  - Blood creatinine abnormal [Unknown]

NARRATIVE: CASE EVENT DATE: 20170214
